FAERS Safety Report 8007220-8 (Version None)
Quarter: 2011Q4

REPORT INFORMATION
  Report Type: 
  Country: None (occurrence: None)
  Receive Date: 20111227
  Receipt Date: 20111223
  Transmission Date: 20120403
  Serious: Yes (Other)
  Sender: FDA-Public Use
  Company Number: CN-PFIZER INC-2011291582

PATIENT
  Age: 8 Day

DRUGS (2)
  1. PIPERACILLIN AND TAZOBACTAM [Suspect]
     Indication: MENINGITIS
  2. MEROPENEM [Concomitant]
     Indication: MENINGITIS

REACTIONS (1)
  - CSF TEST ABNORMAL [None]
